FAERS Safety Report 24752404 (Version 2)
Quarter: 2025Q1

REPORT INFORMATION
  Report Type: Spontaneous
  Country: NL (occurrence: NL)
  Receive Date: 20241219
  Receipt Date: 20250226
  Transmission Date: 20250408
  Serious: No
  Sender: CHIESI
  Company Number: NL-CHIESI-2024CHF08063

PATIENT
  Age: 16 Year
  Sex: Female
  Weight: 72 kg

DRUGS (2)
  1. METRELEPTIN [Suspect]
     Active Substance: METRELEPTIN
     Indication: Congenital generalised lipodystrophy
     Route: 065
     Dates: start: 202304
  2. METRELEPTIN [Suspect]
     Active Substance: METRELEPTIN
     Route: 065

REACTIONS (1)
  - Alopecia [Recovering/Resolving]

NARRATIVE: CASE EVENT DATE: 20230901
